FAERS Safety Report 18251129 (Version 4)
Quarter: 2020Q4

REPORT INFORMATION
  Report Type: Spontaneous
  Country: PL (occurrence: PL)
  Receive Date: 20200910
  Receipt Date: 20201106
  Transmission Date: 20210113
  Serious: Yes (Hospitalization, Other)
  Sender: FDA-Public Use
  Company Number: PL-JNJFOC-20200901177

PATIENT
  Age: 56 Year
  Sex: Female

DRUGS (8)
  1. PARACETAMOL [Interacting]
     Active Substance: ACETAMINOPHEN
     Indication: ANALGESIC THERAPY
     Dosage: DOSE: 4 X 1 G
     Route: 048
  2. AMIODARONE [Suspect]
     Active Substance: AMIODARONE
     Indication: ATRIAL FIBRILLATION
     Dosage: 200 MG, QD
     Route: 065
  3. WARFARIN [Interacting]
     Active Substance: WARFARIN
     Indication: ATRIAL FIBRILLATION
     Dosage: DOSE ADJUSTED TO VALUE OF INTERNATIONAL NORMALISED RATIO
     Route: 065
  4. PARACETAMOL [Suspect]
     Active Substance: ACETAMINOPHEN
     Indication: SPINAL PAIN
     Dosage: 1 G, QID
     Route: 048
  5. NORFLOXACIN [Interacting]
     Active Substance: NORFLOXACIN
     Indication: URINARY TRACT INFECTION
     Dosage: 400 MG, BID?400 MG, ONCE IN 12 HOURS
     Route: 048
  6. CYCLONAMINE [Suspect]
     Active Substance: ETHAMSYLATE
     Indication: GENITAL HAEMORRHAGE
     Route: 065
  7. AGOMELATIN [Interacting]
     Active Substance: AGOMELATINE
     Indication: DEPRESSION
     Dosage: 50 MG, QD
     Route: 065
  8. NORFLOXACIN [Interacting]
     Active Substance: NORFLOXACIN
     Indication: ESCHERICHIA URINARY TRACT INFECTION

REACTIONS (8)
  - Genital haemorrhage [Unknown]
  - Depression [Unknown]
  - Haemorrhage [Unknown]
  - International normalised ratio increased [Unknown]
  - Escherichia urinary tract infection [Unknown]
  - Spinal pain [Unknown]
  - Drug interaction [Unknown]
  - Drug level increased [Unknown]

NARRATIVE: CASE EVENT DATE: 2020
